FAERS Safety Report 9178825 (Version 1)
Quarter: 2012Q4

REPORT INFORMATION
  Report Type: 
  Country: PR (occurrence: PR)
  Receive Date: 20121029
  Receipt Date: 20121029
  Transmission Date: 20130627
  Serious: Yes (Death)
  Sender: FDA-Public Use
  Company Number: PR-JNJFOC-20121011887

PATIENT
  Age: 49 Year
  Sex: Male

DRUGS (4)
  1. REMICADE [Suspect]
     Indication: CROHN^S DISEASE
     Route: 042
     Dates: start: 2007
  2. AMINOSALICYLIC ACID [Concomitant]
     Route: 065
     Dates: start: 2007
  3. ANTIBIOTICS [Concomitant]
     Route: 065
     Dates: start: 2007
  4. AZATHIOPRINE [Concomitant]
     Route: 065
     Dates: start: 2007

REACTIONS (1)
  - Diffuse large B-cell lymphoma [Fatal]
